FAERS Safety Report 4579396-6 (Version None)
Quarter: 2005Q1

REPORT INFORMATION
  Report Type: 
  Country: None (occurrence: None)
  Receive Date: 20050209
  Receipt Date: 20050121
  Transmission Date: 20050727
  Serious: Yes (Hospitalization)
  Sender: FDA-Public Use
  Company Number: USA020921790

PATIENT
  Age: 53 Year
  Sex: Female
  Weight: 100 kg

DRUGS (8)
  1. HUMULIN N [Suspect]
     Indication: DIABETES MELLITUS
  2. HUMALOG [Suspect]
     Indication: DIABETES MELLITUS
     Dosage: 10 U DAY
     Dates: start: 20020101
  3. HUMALOG [Suspect]
     Indication: DIABETES MELLITUS
  4. HUMULIN L [Suspect]
     Indication: DIABETES MELLITUS
     Dosage: 5 U DAY
     Dates: start: 20041001
  5. HUMULIN 70/30 [Suspect]
     Indication: DIABETES MELLITUS
     Dosage: 25 U DAY
     Dates: start: 20020801
  6. AMBIEN [Concomitant]
  7. LORAZEPAM [Concomitant]
  8. ASPIRIN [Concomitant]

REACTIONS (25)
  - ABASIA [None]
  - ABDOMINAL DISTENSION [None]
  - ARRHYTHMIA [None]
  - BLOOD GLUCOSE DECREASED [None]
  - BLOOD GLUCOSE INCREASED [None]
  - BREAST TENDERNESS [None]
  - CARDIAC DISORDER [None]
  - CHEMICAL INJURY [None]
  - CONDITION AGGRAVATED [None]
  - DIZZINESS [None]
  - GENERALISED OEDEMA [None]
  - HUNGER [None]
  - HYPERAESTHESIA [None]
  - HYPOKINESIA [None]
  - MUSCLE SPASMS [None]
  - NIPPLE DISORDER [None]
  - NIPPLE PAIN [None]
  - OEDEMA PERIPHERAL [None]
  - PAIN IN EXTREMITY [None]
  - SUPRAVENTRICULAR EXTRASYSTOLES [None]
  - SWELLING FACE [None]
  - TIC [None]
  - TRIGGER FINGER [None]
  - VENTRICULAR EXTRASYSTOLES [None]
  - WEIGHT INCREASED [None]
